FAERS Safety Report 4300173-5 (Version None)
Quarter: 2004Q1

REPORT INFORMATION
  Report Type: 
  Country: None (occurrence: None)
  Receive Date: 20040220
  Receipt Date: 20020918
  Transmission Date: 20041129
  Serious: Yes (Life-Threatening, Hospitalization)
  Sender: FDA-Public Use
  Company Number: PHBS2002JP11299

PATIENT
  Age: 73 Year
  Sex: Male
  Weight: 50 kg

DRUGS (3)
  1. LOCHOL [Suspect]
     Route: 048
     Dates: end: 20020917
  2. UNIPHYL [Suspect]
     Route: 048
     Dates: end: 20020917
  3. SEDIEL [Suspect]
     Route: 048
     Dates: end: 20020917

REACTIONS (16)
  - ALANINE AMINOTRANSFERASE INCREASED [None]
  - ASPARTATE AMINOTRANSFERASE INCREASED [None]
  - BLOOD ALKALINE PHOSPHATASE INCREASED [None]
  - BLOOD CREATINE PHOSPHOKINASE INCREASED [None]
  - BLOOD LACTATE DEHYDROGENASE INCREASED [None]
  - COMA [None]
  - CONVULSION [None]
  - HYPERHIDROSIS [None]
  - HYPERREFLEXIA [None]
  - LETHARGY [None]
  - MYOGLOBINURIA [None]
  - OVERDOSE [None]
  - PYREXIA [None]
  - RENAL IMPAIRMENT [None]
  - RHABDOMYOLYSIS [None]
  - SEROTONIN SYNDROME [None]
